FAERS Safety Report 8174770-3 (Version None)
Quarter: 2012Q1

REPORT INFORMATION
  Report Type: 
  Country: None (occurrence: None)
  Receive Date: 20120229
  Receipt Date: 20120222
  Transmission Date: 20120608
  Serious: Yes (Other)
  Sender: FDA-Public Use
  Company Number: DE-PFIZER INC-2012047018

PATIENT
  Age: 29 Year
  Sex: Female
  Weight: 62 kg

DRUGS (3)
  1. VENLAFAXINE HCL [Suspect]
     Indication: ANXIETY DISORDER
     Dosage: 187.5 MG/DAY
     Route: 048
     Dates: start: 20110218, end: 20110929
  2. METOCLOPRAMIDE HYDROCHLORIDE [Suspect]
     Indication: VOMITING IN PREGNANCY
     Dosage: UNK
     Route: 048
  3. FOLIC ACID [Concomitant]
     Indication: PROPHYLAXIS OF NEURAL TUBE DEFECT
     Dosage: UNK
     Route: 048
     Dates: start: 20110218, end: 20110929

REACTIONS (3)
  - MATERNAL EXPOSURE DURING PREGNANCY [None]
  - PREMATURE SEPARATION OF PLACENTA [None]
  - STILLBIRTH [None]
